FAERS Safety Report 19722946 (Version 2)
Quarter: 2021Q3

REPORT INFORMATION
  Report Type: Spontaneous
  Country: US (occurrence: US)
  Receive Date: 20210819
  Receipt Date: 20210922
  Transmission Date: 20211014
  Serious: Yes (Other)
  Sender: FDA-Public Use
  Company Number: US-BAYER-2021-196123

PATIENT
  Age: 48 Year
  Sex: Male

DRUGS (1)
  1. CIPRO [Suspect]
     Active Substance: CIPROFLOXACIN HYDROCHLORIDE
     Indication: URINARY TRACT INFECTION
     Route: 048

REACTIONS (24)
  - Back pain [None]
  - Fat tissue increased [None]
  - Anxiety [None]
  - Gait disturbance [None]
  - Depression [None]
  - Onychomycosis [None]
  - Myalgia [None]
  - Diarrhoea [None]
  - Pain in extremity [None]
  - Paraesthesia [None]
  - Headache [None]
  - Hernia [None]
  - Peripheral swelling [None]
  - Memory impairment [None]
  - Arthralgia [None]
  - Muscle tightness [None]
  - Visual impairment [None]
  - Tremor [None]
  - Aggression [None]
  - Weight increased [None]
  - Tendon rupture [None]
  - Anger [None]
  - Alopecia [None]
  - Pyrexia [None]
